FAERS Safety Report 6912284-6 (Version None)
Quarter: 2010Q3

REPORT INFORMATION
  Report Type: 
  Country: None (occurrence: None)
  Receive Date: 20100806
  Receipt Date: 20080303
  Transmission Date: 20110219
  Serious: No
  Sender: FDA-Public Use
  Company Number: US-PFIZER INC-2008020763

PATIENT
  Sex: Female
  Weight: 123.38 kg

DRUGS (9)
  1. GLUCOTROL [Suspect]
     Indication: DIABETES MELLITUS
     Dates: start: 20061001
  2. METFORMIN HCL [Concomitant]
  3. WARFARIN SODIUM [Concomitant]
  4. METOPROLOL [Concomitant]
     Indication: HYPERTENSION
  5. FUROSEMIDE [Concomitant]
  6. IRON [Concomitant]
  7. HYDROCODONE BITARTRATE [Concomitant]
  8. SIMVASTATIN [Concomitant]
     Indication: HYPERLIPIDAEMIA
  9. LEVOTHYROXINE [Concomitant]
     Indication: HYPOTHYROIDISM

REACTIONS (1)
  - COUGH [None]
